FAERS Safety Report 19416295 (Version 1)
Quarter: 2021Q2

REPORT INFORMATION
  Report Type: Spontaneous
  Country: US (occurrence: US)
  Receive Date: 20210615
  Receipt Date: 20210615
  Transmission Date: 20210717
  Serious: No
  Sender: FDA-Public Use
  Company Number: US-ALLERGAN-2050032US

PATIENT
  Age: 31 Year
  Sex: Female
  Weight: 61.24 kg

DRUGS (6)
  1. ZINC. [Concomitant]
     Active Substance: ZINC
  2. VITAMIN D [Concomitant]
     Active Substance: VITAMIN D NOS
  3. KYBELLA [Suspect]
     Active Substance: DEOXYCHOLIC ACID
     Indication: FAT TISSUE INCREASED
     Dosage: UNK, SINGLE
     Route: 065
     Dates: start: 20200916, end: 20200916
  4. VITAMIN C [Concomitant]
     Active Substance: ASCORBIC ACID
  5. KYBELLA [Suspect]
     Active Substance: DEOXYCHOLIC ACID
     Dosage: UNK, SINGLE
     Route: 065
     Dates: start: 20200805, end: 20200805
  6. MULTIVITAMIN [Concomitant]
     Active Substance: VITAMINS

REACTIONS (1)
  - Drug ineffective [Unknown]

NARRATIVE: CASE EVENT DATE: 202008
